FAERS Safety Report 5818641-3 (Version None)
Quarter: 2008Q3

REPORT INFORMATION
  Report Type: 
  Country: None (occurrence: None)
  Receive Date: 20080717
  Receipt Date: 20080717
  Transmission Date: 20090109
  Serious: Yes (Life-Threatening, Hospitalization)
  Sender: FDA-Public Use
  Company Number: None

PATIENT
  Age: 65 Year
  Sex: Female
  Weight: 129.2752 kg

DRUGS (1)
  1. CIPRO [Suspect]
     Indication: PROTEUS INFECTION
     Dosage: 500 MG 1 TAB 2X DAILY BY MOUTH
     Route: 048
     Dates: start: 20080222, end: 20080224

REACTIONS (4)
  - DRUG INTERACTION [None]
  - EPISTAXIS [None]
  - INTERNATIONAL NORMALISED RATIO INCREASED [None]
  - MYOCARDIAL INFARCTION [None]
